FAERS Safety Report 9157607 (Version 1)
Quarter: 2013Q1

REPORT INFORMATION
  Report Type: Spontaneous
  Country: US (occurrence: US)
  Receive Date: 20130312
  Receipt Date: 20130312
  Transmission Date: 20140127
  Serious: No
  Sender: FDA-Public Use
  Company Number: US-BAYER-2013-030809

PATIENT
  Age: 80 Year
  Sex: Female
  Weight: 50 kg

DRUGS (6)
  1. ALEVE CAPLET/TABLET,MIDOL EXTENDED RELIEF CAPLET [Suspect]
     Dosage: 2 DF, QD
     Route: 048
  2. ETHAMBUTOL [Concomitant]
  3. RIFAMPIN [Concomitant]
  4. ADELOX [Concomitant]
  5. MULTIVITAMIN [Concomitant]
  6. CALCIUM [Concomitant]

REACTIONS (1)
  - Incorrect drug administration duration [None]
